FAERS Safety Report 20331299 (Version 1)
Quarter: 2022Q1

REPORT INFORMATION
  Report Type: Report from Study
  Country: US (occurrence: US)
  Receive Date: 20220113
  Receipt Date: 20220113
  Transmission Date: 20220424
  Serious: Yes (Disabling)
  Sender: FDA-Public Use
  Company Number: US-MYLANLABS-2022M1000062

PATIENT
  Sex: Male
  Weight: 122.47 kg

DRUGS (11)
  1. GLATIRAMER ACETATE [Suspect]
     Active Substance: GLATIRAMER ACETATE
     Indication: Relapsing-remitting multiple sclerosis
     Dosage: 40 MILLIGRAM, 3XW
     Route: 058
     Dates: start: 2021
  2. GABAPENTIN [Suspect]
     Active Substance: GABAPENTIN
     Indication: Product used for unknown indication
     Dosage: UNK
  3. PREGABALIN [Concomitant]
     Active Substance: PREGABALIN
     Dosage: UNK
  4. TRESIBA [Concomitant]
     Active Substance: INSULIN DEGLUDEC
     Dosage: UNK
  5. TRULICITY [Concomitant]
     Active Substance: DULAGLUTIDE
     Dosage: UNK
  6. METFORMIN [Concomitant]
     Active Substance: METFORMIN HYDROCHLORIDE
     Dosage: UNK
  7. LOSARTAN [Concomitant]
     Active Substance: LOSARTAN
     Dosage: UNK
  8. LEVOTHYROXINE [Concomitant]
     Active Substance: LEVOTHYROXINE
     Dosage: UNK
  9. FENOFIBRATE [Concomitant]
     Active Substance: FENOFIBRATE
     Dosage: UNK
  10. NUVIGIL [Concomitant]
     Active Substance: ARMODAFINIL
     Dosage: UNK
  11. LYRICA [Concomitant]
     Active Substance: PREGABALIN
     Dosage: UNK

REACTIONS (13)
  - Drug ineffective [Unknown]
  - Asthenia [Unknown]
  - Pain [Unknown]
  - Neuralgia [Unknown]
  - Pain in extremity [Unknown]
  - Back pain [Unknown]
  - Gait disturbance [Unknown]
  - Sleep deficit [Unknown]
  - Exposure to extreme temperature [Unknown]
  - Feeling abnormal [Unknown]
  - Injection site erythema [Unknown]
  - Feeling hot [Unknown]
  - Injection site urticaria [Unknown]

NARRATIVE: CASE EVENT DATE: 20210101
